FAERS Safety Report 16361822 (Version 3)
Quarter: 2019Q3

REPORT INFORMATION
  Report Type: Spontaneous
  Country: US (occurrence: US)
  Receive Date: 20190528
  Receipt Date: 20190710
  Transmission Date: 20191004
  Serious: No
  Sender: FDA-Public Use
  Company Number: US-PFIZER INC-2019224544

PATIENT
  Age: 62 Year
  Sex: Female

DRUGS (2)
  1. GEODON [Suspect]
     Active Substance: ZIPRASIDONE HYDROCHLORIDE\ZIPRASIDONE MESYLATE
     Dosage: 80 MG, UNK
  2. GEODON [Suspect]
     Active Substance: ZIPRASIDONE HYDROCHLORIDE\ZIPRASIDONE MESYLATE
     Indication: BRAIN INJURY
     Dosage: 20 MG, UNK

REACTIONS (3)
  - Panic reaction [Unknown]
  - Drug ineffective [Unknown]
  - Mania [Recovering/Resolving]
